FAERS Safety Report 7770247-5 (Version None)
Quarter: 2011Q3

REPORT INFORMATION
  Report Type: 
  Country: None (occurrence: None)
  Receive Date: 20110922
  Receipt Date: 20100913
  Transmission Date: 20111222
  Serious: No
  Sender: FDA-Public Use
  Company Number: US-ASTRAZENECA-2010SE42848

PATIENT
  Age: 18 Year
  Sex: Male
  Weight: 81.6 kg

DRUGS (2)
  1. SEROQUEL XR [Suspect]
     Indication: BIPOLAR DISORDER
     Route: 048
     Dates: start: 20100819, end: 20100910
  2. PRISTIQ [Concomitant]

REACTIONS (3)
  - MANIA [None]
  - INSOMNIA [None]
  - DRUG DOSE OMISSION [None]
